FAERS Safety Report 11443778 (Version 2)
Quarter: 2015Q3

REPORT INFORMATION
  Report Type: Spontaneous
  Country: JP (occurrence: JP)
  Receive Date: 20150901
  Receipt Date: 20150917
  Transmission Date: 20151125
  Serious: No
  Sender: FDA-Public Use
  Company Number: JP-AMGEN-JPNSP2015089078

PATIENT
  Age: 72 Year
  Sex: Male
  Weight: 66.4 kg

DRUGS (21)
  1. CALCIUM LEVOFOLINATE [Concomitant]
     Active Substance: LEVOLEUCOVORIN CALCIUM
     Dosage: 350 MG, Q4WEEKS
     Route: 041
     Dates: start: 20141025, end: 20141227
  2. VECTIBIX [Suspect]
     Active Substance: PANITUMUMAB
     Dosage: 320 MG, Q4WEEKS
     Route: 041
     Dates: start: 20141025, end: 20141227
  3. IRINOTECAN HYDROCHLORIDE. [Concomitant]
     Active Substance: IRINOTECAN HYDROCHLORIDE
     Indication: COLON CANCER
     Dosage: 210 MG, Q2WEEKS
     Route: 041
     Dates: start: 20140703, end: 20140731
  4. 5-FU                               /00098801/ [Concomitant]
     Active Substance: FLUOROURACIL
     Dosage: 3380 MG, Q4WEEKS
     Route: 041
     Dates: start: 20150124
  5. VECTIBIX [Suspect]
     Active Substance: PANITUMUMAB
     Indication: COLON CANCER
     Dosage: 320 MG, Q2WEEKS
     Route: 041
     Dates: start: 20140703, end: 20140731
  6. IRINOTECAN HYDROCHLORIDE. [Concomitant]
     Active Substance: IRINOTECAN HYDROCHLORIDE
     Dosage: 160 MG, Q4WEEKS
     Route: 041
     Dates: start: 20141025, end: 20141227
  7. 5-FU                               /00098801/ [Concomitant]
     Active Substance: FLUOROURACIL
     Dosage: 560 MG, Q4WEEKS
     Route: 040
     Dates: start: 20150124
  8. CALCIUM LEVOFOLINATE [Concomitant]
     Active Substance: LEVOLEUCOVORIN CALCIUM
     Dosage: 350 MG, Q2WEEKS
     Route: 041
     Dates: start: 20140906, end: 20140906
  9. CALCIUM LEVOFOLINATE [Concomitant]
     Active Substance: LEVOLEUCOVORIN CALCIUM
     Dosage: 350 MG, Q4WEEKS
     Route: 041
     Dates: start: 20150124
  10. EMEND [Concomitant]
     Active Substance: APREPITANT
     Indication: PROPHYLAXIS OF NAUSEA AND VOMITING
     Dosage: UNK
     Route: 048
     Dates: start: 20140703
  11. VECTIBIX [Suspect]
     Active Substance: PANITUMUMAB
     Dosage: 320 MG, Q4WEEKS
     Route: 041
     Dates: start: 20150124
  12. 5-FU                               /00098801/ [Concomitant]
     Active Substance: FLUOROURACIL
     Dosage: 3380 MG, Q2WEEKS
     Route: 041
     Dates: start: 20140703, end: 20140731
  13. 5-FU                               /00098801/ [Concomitant]
     Active Substance: FLUOROURACIL
     Dosage: 3380 MG, Q4WEEKS
     Route: 041
     Dates: start: 20141025, end: 20141227
  14. CALCIUM LEVOFOLINATE [Concomitant]
     Active Substance: LEVOLEUCOVORIN CALCIUM
     Indication: COLON CANCER
     Dosage: 350 MG, Q2WEEKS
     Route: 041
     Dates: start: 20140703, end: 20140731
  15. MINOCYCLINE HYDROCHLORIDE. [Concomitant]
     Active Substance: MINOCYCLINE HYDROCHLORIDE
     Indication: PROPHYLAXIS
     Dosage: 100 MG, UNK
     Route: 048
     Dates: start: 20140703
  16. 5-FU                               /00098801/ [Concomitant]
     Active Substance: FLUOROURACIL
     Indication: COLON CANCER
     Dosage: 560 MG, Q2WEEKS
     Route: 040
     Dates: start: 20140703, end: 20140731
  17. 5-FU                               /00098801/ [Concomitant]
     Active Substance: FLUOROURACIL
     Dosage: 560 MG, Q2WEEKS
     Route: 042
     Dates: start: 20140906, end: 20140906
  18. 5-FU                               /00098801/ [Concomitant]
     Active Substance: FLUOROURACIL
     Dosage: 560 MG, Q4WEEKS
     Route: 040
     Dates: start: 20141025, end: 20141227
  19. VECTIBIX [Suspect]
     Active Substance: PANITUMUMAB
     Dosage: 320 MG, Q2WEEKS
     Route: 041
     Dates: start: 20140906, end: 20140906
  20. IRINOTECAN HYDROCHLORIDE. [Concomitant]
     Active Substance: IRINOTECAN HYDROCHLORIDE
     Indication: COLON CANCER
     Dosage: 210 MG, Q2WEEKS
     Route: 041
     Dates: start: 20140906, end: 20140906
  21. IRINOTECAN HYDROCHLORIDE. [Concomitant]
     Active Substance: IRINOTECAN HYDROCHLORIDE
     Dosage: 160 MG, Q4WEEKS
     Route: 041
     Dates: start: 20150124

REACTIONS (5)
  - Dry skin [Unknown]
  - White blood cell count decreased [Recovered/Resolved]
  - Neutrophil count decreased [Recovered/Resolved]
  - Stomatitis [Not Recovered/Not Resolved]
  - Paronychia [Unknown]

NARRATIVE: CASE EVENT DATE: 20140927
